FAERS Safety Report 15580192 (Version 1)
Quarter: 2018Q4

REPORT INFORMATION
  Report Type: Spontaneous
  Country: US (occurrence: US)
  Receive Date: 20181102
  Receipt Date: 20181102
  Transmission Date: 20190205
  Serious: No
  Sender: FDA-Public Use
  Company Number: None

PATIENT
  Age: 48 Year
  Sex: Female
  Weight: 87.3 kg

DRUGS (11)
  1. SYMLINPEN [Suspect]
     Active Substance: PRAMLINTIDE ACETATE
     Indication: TYPE 1 DIABETES MELLITUS
     Route: 058
     Dates: start: 20170501
  2. MEDTRONIC INSULIN PUMP [Concomitant]
  3. ATORVASTATIN [Concomitant]
     Active Substance: ATORVASTATIN
  4. LORAZEPAM. [Concomitant]
     Active Substance: LORAZEPAM
  5. SYMLINPEN [Suspect]
     Active Substance: PRAMLINTIDE ACETATE
     Indication: DUMPING SYNDROME
     Route: 058
     Dates: start: 20170501
  6. SYMLINPEN [Suspect]
     Active Substance: PRAMLINTIDE ACETATE
     Indication: WEIGHT CONTROL
     Route: 058
     Dates: start: 20170501
  7. BIRTH CONTROL [Concomitant]
     Active Substance: UNSPECIFIED INGREDIENT
  8. LEVOTHYROXINE. [Concomitant]
     Active Substance: LEVOTHYROXINE
  9. SYMLINPEN [Concomitant]
     Active Substance: PRAMLINTIDE ACETATE
  10. FLUOXETINE [Concomitant]
     Active Substance: FLUOXETINE HYDROCHLORIDE
  11. NOVOLOG [Concomitant]
     Active Substance: INSULIN ASPART

REACTIONS (3)
  - Impaired gastric emptying [None]
  - Product formulation issue [None]
  - Product complaint [None]
